FAERS Safety Report 6846982-X (Version None)
Quarter: 2010Q3

REPORT INFORMATION
  Report Type: 
  Country: None (occurrence: None)
  Receive Date: 20100713
  Receipt Date: 20100702
  Transmission Date: 20110219
  Serious: Yes (Disabling)
  Sender: FDA-Public Use
  Company Number: TOR 2010-0085

PATIENT
  Age: 74 Year
  Sex: Female

DRUGS (1)
  1. FARESTON [Suspect]
     Indication: BREAST CANCER RECURRENT
     Dosage: 40 MG ORAL
     Route: 048
     Dates: start: 20081101

REACTIONS (1)
  - UTERINE ENLARGEMENT [None]
